FAERS Safety Report 10563681 (Version 3)
Quarter: 2017Q1

REPORT INFORMATION
  Report Type: Spontaneous
  Country: US (occurrence: US)
  Receive Date: 20141104
  Receipt Date: 20170105
  Transmission Date: 20170428
  Serious: No
  Sender: FDA-Public Use
  Company Number: US-PFIZER INC-2014302866

PATIENT
  Age: 62 Year
  Sex: Female

DRUGS (20)
  1. METOCLOPRAMIDE HCL [Suspect]
     Active Substance: METOCLOPRAMIDE HYDROCHLORIDE
     Dosage: UNK
  2. HYDROCODONE [Suspect]
     Active Substance: HYDROCODONE
     Dosage: UNK
  3. DILAUDID COUGH SYRUP [Suspect]
     Active Substance: GUAIFENESIN\HYDROMORPHONE HYDROCHLORIDE
     Dosage: UNK
  4. TORSEMIDE. [Suspect]
     Active Substance: TORSEMIDE
     Dosage: UNK
  5. QUINIDINE [Suspect]
     Active Substance: QUINIDINE
     Dosage: UNK
  6. FENOPROFEN CALCIUM. [Suspect]
     Active Substance: FENOPROFEN CALCIUM
     Dosage: UNK
  7. PHENTOLAMINE [Suspect]
     Active Substance: PHENTOLAMINE
     Dosage: UNK
  8. PRAVASTATIN. [Suspect]
     Active Substance: PRAVASTATIN
     Dosage: UNK
  9. NAPROSYN [Suspect]
     Active Substance: NAPROXEN
     Dosage: UNK
  10. REGLAN [Suspect]
     Active Substance: METOCLOPRAMIDE HYDROCHLORIDE
     Dosage: UNK
  11. VICODIN [Suspect]
     Active Substance: ACETAMINOPHEN\HYDROCODONE BITARTRATE
     Dosage: UNK
  12. MAGNESIUM SULFATE. [Suspect]
     Active Substance: MAGNESIUM SULFATE
     Dosage: UNK
  13. OXYCODONE [Suspect]
     Active Substance: OXYCODONE
     Dosage: UNK
  14. HYDROCHLOROTHIAZIDE. [Suspect]
     Active Substance: HYDROCHLOROTHIAZIDE
     Dosage: UNK
  15. HYDROXYCHLOROQUINE [Suspect]
     Active Substance: HYDROXYCHLOROQUINE
     Dosage: UNK
  16. NIFEDIPINE. [Suspect]
     Active Substance: NIFEDIPINE
     Dosage: UNK
  17. LOVENOX [Suspect]
     Active Substance: ENOXAPARIN SODIUM
     Dosage: UNK
  18. LASIX [Suspect]
     Active Substance: FUROSEMIDE
     Dosage: UNK
  19. NEURONTIN [Suspect]
     Active Substance: GABAPENTIN
     Dosage: UNK
  20. TRAMADOL HCL [Suspect]
     Active Substance: TRAMADOL HYDROCHLORIDE
     Dosage: UNK

REACTIONS (1)
  - Drug hypersensitivity [Unknown]
